FAERS Safety Report 15001815 (Version 1)
Quarter: 2018Q2

REPORT INFORMATION
  Report Type: Spontaneous
  Country: CN (occurrence: CN)
  Receive Date: 20180612
  Receipt Date: 20180612
  Transmission Date: 20180711
  Serious: Yes (Hospitalization, Other)
  Sender: FDA-Public Use
  Company Number: CN-ASTRAZENECA-2018SE73439

PATIENT
  Age: 73 Year
  Sex: Female

DRUGS (9)
  1. BRILINTA [Suspect]
     Active Substance: TICAGRELOR
     Route: 048
     Dates: start: 20180526, end: 20180531
  2. ASPIRIN. [Suspect]
     Active Substance: ASPIRIN
     Route: 048
  3. BRILINTA [Suspect]
     Active Substance: TICAGRELOR
     Route: 048
     Dates: start: 20180605
  4. BISOPROLOL [Concomitant]
     Active Substance: BISOPROLOL
     Route: 048
  5. ATORVASTATIN [Concomitant]
     Active Substance: ATORVASTATIN
     Route: 048
  6. EZETIMIBE. [Concomitant]
     Active Substance: EZETIMIBE
     Route: 048
  7. PULMICORT RESPULES [Suspect]
     Active Substance: BUDESONIDE
     Dosage: 1 MG: 2 ML
     Route: 055
     Dates: start: 20180527
  8. FUROSEMIDE. [Concomitant]
     Active Substance: FUROSEMIDE
     Route: 048
  9. PANTOPRAZOLE [Concomitant]
     Active Substance: PANTOPRAZOLE
     Route: 048

REACTIONS (3)
  - Cardiac failure acute [Unknown]
  - Skin abrasion [Unknown]
  - Medication residue present [Unknown]

NARRATIVE: CASE EVENT DATE: 20180526
